FAERS Safety Report 23430499 (Version 1)
Quarter: 2024Q1

REPORT INFORMATION
  Report Type: Spontaneous
  Country: JP (occurrence: JP)
  Receive Date: 20240123
  Receipt Date: 20240123
  Transmission Date: 20240410
  Serious: Yes (Other)
  Sender: FDA-Public Use
  Company Number: JP-BRISTOL-MYERS SQUIBB COMPANY-2024-009970

PATIENT
  Age: 40 Year
  Sex: Female

DRUGS (1)
  1. TRIAMCINOLONE ACETONIDE [Suspect]
     Active Substance: TRIAMCINOLONE ACETONIDE
     Indication: Arthralgia
     Dosage: ABOUT 10 TIMES EVERY 3 TO 4 MONTHS
     Route: 042

REACTIONS (4)
  - Tendon dislocation [Recovering/Resolving]
  - Pain [Unknown]
  - Skin atrophy [Recovering/Resolving]
  - Injection site erythema [Recovering/Resolving]
